FAERS Safety Report 5674741-2 (Version None)
Quarter: 2008Q1

REPORT INFORMATION
  Report Type: 
  Country: None (occurrence: None)
  Receive Date: 20080319
  Receipt Date: 20080319
  Transmission Date: 20080703
  Serious: Yes (Life-Threatening, Hospitalization)
  Sender: FDA-Public Use
  Company Number: None

PATIENT
  Age: 47 Year
  Sex: Female
  Weight: 58.9676 kg

DRUGS (2)
  1. FENTANYL TRANSDERMAL SYSTEM [Suspect]
     Indication: SPINAL FUSION SURGERY
     Dosage: 50 MCG 72 HRS TRANSDERMAL  OVERNIGHT
     Route: 062
     Dates: start: 20080222
  2. ROXASETT [Concomitant]

REACTIONS (11)
  - APNOEA [None]
  - BALANCE DISORDER [None]
  - BLINDNESS CORTICAL [None]
  - BLOOD PRESSURE ABNORMAL [None]
  - EMBOLIC STROKE [None]
  - HALLUCINATION, VISUAL [None]
  - HEMIPARESIS [None]
  - HYPERHIDROSIS [None]
  - HYPOTENSION [None]
  - PHARMACEUTICAL PRODUCT COMPLAINT [None]
  - SWELLING FACE [None]
